FAERS Safety Report 15349237 (Version 2)
Quarter: 2020Q3

REPORT INFORMATION
  Report Type: Report from Study
  Country: IT (occurrence: IT)
  Receive Date: 20180904
  Receipt Date: 20181022
  Transmission Date: 20201104
  Serious: Yes (Death, Other)
  Sender: FDA-Public Use
  Company Number: IT-ASTRAZENECA-2018SF08580

PATIENT
  Age: 70 Year
  Sex: Female
  Weight: 57 kg

DRUGS (5)
  1. CEDIRANIB. [Suspect]
     Active Substance: CEDIRANIB
     Indication: OVARIAN CANCER
     Route: 048
     Dates: start: 20180206, end: 20180611
  2. OLAPARIB. [Suspect]
     Active Substance: OLAPARIB
     Indication: OVARIAN CANCER
     Route: 048
     Dates: start: 20180206, end: 20180611
  3. ALPRAZOLAM. [Concomitant]
     Active Substance: ALPRAZOLAM
     Route: 048
  4. AMLODIPINE [Concomitant]
     Active Substance: AMLODIPINE BESYLATE
     Route: 048
     Dates: start: 20180316
  5. TRIATEC (RAMIPRIL) [Concomitant]
     Active Substance: RAMIPRIL
     Route: 048
     Dates: start: 20030101

REACTIONS (1)
  - Myelodysplastic syndrome [Fatal]

NARRATIVE: CASE EVENT DATE: 20180620
